FAERS Safety Report 9721709 (Version 1)
Quarter: 2013Q4

REPORT INFORMATION
  Report Type: Spontaneous
  Country: US (occurrence: US)
  Receive Date: 20131201
  Receipt Date: 20131201
  Transmission Date: 20140711
  Serious: No
  Sender: FDA-Public Use
  Company Number: US-ABBVIE-13P-163-1152559-00

PATIENT
  Age: 73 Year
  Sex: Male
  Weight: 106.69 kg

DRUGS (8)
  1. ANDROGEL [Suspect]
     Indication: BLOOD TESTOSTERONE DECREASED
     Route: 061
     Dates: start: 201308
  2. ANDROGEL [Suspect]
     Indication: BLOOD TESTOSTERONE DECREASED
     Route: 061
     Dates: start: 2012, end: 201308
  3. LISINOPRIL [Concomitant]
     Indication: HYPERTENSION
     Dosage: TAKES 1/2 OF 2 MG PILL
     Route: 048
  4. CRESTOR [Concomitant]
     Indication: BLOOD CHOLESTEROL
     Dosage: TAKES 1/2 OF 10 MG TABLET/DAY
     Route: 048
  5. ALLUPURONAL [Concomitant]
     Indication: GOUT
     Dosage: 2 PILLS/DAY
     Route: 048
  6. TRAMADOL [Concomitant]
     Indication: NEUROPATHY PERIPHERAL
     Route: 048
  7. METOPROLOL [Concomitant]
     Indication: CARDIAC DISORDER
     Route: 048
  8. ASPERIN CAFFEINE [Concomitant]
     Indication: CARDIAC DISORDER
     Route: 048

REACTIONS (5)
  - Somnolence [Not Recovered/Not Resolved]
  - Asthenia [Not Recovered/Not Resolved]
  - Fatigue [Not Recovered/Not Resolved]
  - Drug administered at inappropriate site [Unknown]
  - Hypersomnia [Unknown]
